FAERS Safety Report 6155497-6 (Version None)
Quarter: 2009Q2

REPORT INFORMATION
  Report Type: 
  Country: None (occurrence: None)
  Receive Date: 20090415
  Receipt Date: 20090326
  Transmission Date: 20091009
  Serious: No
  Sender: FDA-Public Use
  Company Number: JP-EISAI MEDICAL RESEARCH-E2020-04355-SPO-JP

PATIENT
  Age: 75 Year
  Sex: Male

DRUGS (2)
  1. ARICEPT [Suspect]
     Indication: DRUG USE FOR UNKNOWN INDICATION
     Route: 048
     Dates: end: 20090101
  2. ARICEPT [Suspect]
     Route: 048
     Dates: start: 20090101, end: 20090209

REACTIONS (1)
  - RHABDOMYOLYSIS [None]
